FAERS Safety Report 8240559-X (Version None)
Quarter: 2012Q1

REPORT INFORMATION
  Report Type: 
  Country: None (occurrence: None)
  Receive Date: 20120328
  Receipt Date: 20120315
  Transmission Date: 20120608
  Serious: Yes (Other)
  Sender: FDA-Public Use
  Company Number: CA-ROCHE-1049834

PATIENT
  Sex: Male
  Weight: 76.726 kg

DRUGS (11)
  1. ADALAT CC [Concomitant]
  2. PROCHLORPERAZINE [Concomitant]
  3. AVASTIN [Suspect]
     Indication: GLIOBLASTOMA
     Route: 042
     Dates: start: 20120217
  4. AVALIDE [Concomitant]
  5. ASPIRIN [Concomitant]
  6. METFORMIN HCL [Concomitant]
  7. DEXAMETHASONE [Concomitant]
  8. ZANTAC [Concomitant]
  9. VITAMIN D [Concomitant]
  10. LIPITOR [Concomitant]
  11. GLUCONORM [Concomitant]

REACTIONS (5)
  - COGNITIVE DISORDER [None]
  - CONFUSIONAL STATE [None]
  - MEMORY IMPAIRMENT [None]
  - FATIGUE [None]
  - ORAL HERPES [None]
